FAERS Safety Report 20734368 (Version 1)
Quarter: 2022Q2

REPORT INFORMATION
  Report Type: Spontaneous
  Country: US (occurrence: US)
  Receive Date: 20220421
  Receipt Date: 20220421
  Transmission Date: 20220721
  Serious: No
  Sender: FDA-Public Use
  Company Number: US-ELI_LILLY_AND_COMPANY-US202204009563

PATIENT
  Sex: Female

DRUGS (2)
  1. TALTZ [Suspect]
     Active Substance: IXEKIZUMAB
     Indication: Ankylosing spondylitis
     Dosage: 80 MG, UNKNOWN
     Route: 058
     Dates: start: 202109, end: 202203
  2. TALTZ [Suspect]
     Active Substance: IXEKIZUMAB
     Indication: Ankylosing spondylitis
     Dosage: 80 MG, UNKNOWN
     Route: 058
     Dates: start: 202109, end: 202203

REACTIONS (1)
  - Drug ineffective [Unknown]
